FAERS Safety Report 8471284-8 (Version None)
Quarter: 2012Q2

REPORT INFORMATION
  Report Type: 
  Country: None (occurrence: None)
  Receive Date: 20120627
  Receipt Date: 20120613
  Transmission Date: 20120825
  Serious: No
  Sender: FDA-Public Use
  Company Number: US-BAYER-2012-059723

PATIENT
  Age: 69 Year
  Sex: Male
  Weight: 94 kg

DRUGS (13)
  1. METFORMIN HCL [Concomitant]
  2. LISINOPRIL [Concomitant]
  3. ALEVE (CAPLET) [Suspect]
     Dosage: 1 DF, BID
     Route: 048
     Dates: start: 20110601
  4. METOPROLOL TARTRATE [Concomitant]
  5. POTASSIUM ACETATE [Concomitant]
  6. CALCIUM CARBONATE [Concomitant]
  7. FINASTERIDE [Concomitant]
  8. COD-LIVER OIL [Concomitant]
  9. SIMVASTATIN [Concomitant]
  10. LOVAZA [Concomitant]
  11. ALEVE (CAPLET) [Suspect]
     Indication: ARTHRITIS
     Dosage: 1 DF, BID
     Route: 048
     Dates: start: 20120601
  12. FUROSEMIDE [Concomitant]
  13. GLYBURIDE [Concomitant]

REACTIONS (1)
  - ARTHRITIS [None]
